FAERS Safety Report 5835154-3 (Version None)
Quarter: 2008Q3

REPORT INFORMATION
  Report Type: 
  Country: None (occurrence: None)
  Receive Date: 20080724
  Receipt Date: 20071220
  Transmission Date: 20090109
  Serious: No
  Sender: FDA-Public Use
  Company Number: 07H-163-0313629-00

PATIENT
  Age: 54 Year
  Sex: Male

DRUGS (1)
  1. HYDROMORPHONE HCL [Suspect]
     Indication: PROCEDURAL PAIN
     Dosage: INTRAVENOUS
     Route: 042
     Dates: start: 20071217

REACTIONS (1)
  - OVERDOSE [None]
